FAERS Safety Report 7518744-1 (Version None)
Quarter: 2011Q2

REPORT INFORMATION
  Report Type: 
  Country: None (occurrence: None)
  Receive Date: 20110523
  Receipt Date: 20110510
  Transmission Date: 20111010
  Serious: Yes (Hospitalization)
  Sender: FDA-Public Use
  Company Number: TPG2011A00951

PATIENT
  Age: 66 Year
  Sex: Female

DRUGS (1)
  1. COMPETACT (PIOGLITAZONE HYDROCHLORIDE, METFORMIN HYDROCHLORIDE) [Suspect]
     Indication: PRODUCT USED FOR UNKNOWN INDICATION
     Dosage: PIOGLITAZONE/METFORMIN 15/850 MG PER ORAL
     Route: 048

REACTIONS (3)
  - UPPER LIMB FRACTURE [None]
  - FALL [None]
  - MUSCLE ATROPHY [None]
